FAERS Safety Report 16322021 (Version 3)
Quarter: 2019Q2

REPORT INFORMATION
  Report Type: Report from Study
  Country: US (occurrence: US)
  Receive Date: 20190516
  Receipt Date: 20190610
  Transmission Date: 20190711
  Serious: Yes (Death, Hospitalization)
  Sender: FDA-Public Use
  Company Number: US-ACTELION-A-NJ2018-181407

PATIENT
  Sex: Female
  Weight: 52.61 kg

DRUGS (3)
  1. ADCIRCA [Concomitant]
     Active Substance: TADALAFIL
  2. TRACLEER [Suspect]
     Active Substance: BOSENTAN
     Indication: PULMONARY ARTERIAL HYPERTENSION
     Dosage: 125 MG, BID
     Route: 048
  3. TYVASO [Concomitant]
     Active Substance: TREPROSTINIL

REACTIONS (9)
  - Right ventricular failure [Fatal]
  - Concomitant disease progression [Unknown]
  - Dehydration [Unknown]
  - Fluid overload [Unknown]
  - Dyspnoea exertional [Unknown]
  - Hospitalisation [Unknown]
  - General physical health deterioration [Unknown]
  - Rehabilitation therapy [Unknown]
  - Pulmonary arterial hypertension [Unknown]
